FAERS Safety Report 20626160 (Version 1)
Quarter: 2022Q1

REPORT INFORMATION
  Report Type: Spontaneous
  Country: US (occurrence: US)
  Receive Date: 20220323
  Receipt Date: 20220323
  Transmission Date: 20220423
  Serious: No
  Sender: FDA-Public Use
  Company Number: US-MMM-SUALZ9EP

PATIENT
  Age: 35 Year
  Sex: Male

DRUGS (2)
  1. RILPIVIRINE [Suspect]
     Active Substance: RILPIVIRINE
     Indication: HIV infection
     Dosage: UNK, 400MG CABOTEGRAVIR + 600MG RILPIVIRINE
     Route: 030
     Dates: start: 20220309
  2. CABOTEGRAVIR [Suspect]
     Active Substance: CABOTEGRAVIR
     Indication: HIV infection
     Dosage: UNK, 400MG CABOTEGRAVIR + 600MG RILPIVIRINE
     Route: 065
     Dates: start: 20220309

REACTIONS (3)
  - Product dispensing error [Unknown]
  - Incorrect dose administered [Unknown]
  - Product complaint [Unknown]

NARRATIVE: CASE EVENT DATE: 20220309
